FAERS Safety Report 4703148-7 (Version None)
Quarter: 2005Q2

REPORT INFORMATION
  Report Type: 
  Country: None (occurrence: None)
  Receive Date: 20050629
  Receipt Date: 20050622
  Transmission Date: 20051028
  Serious: Yes (Hospitalization)
  Sender: FDA-Public Use
  Company Number: 200515811GDDC

PATIENT
  Age: 54 Year
  Sex: Female

DRUGS (3)
  1. DOCETAXEL [Suspect]
     Indication: BREAST CANCER
     Route: 042
     Dates: start: 20050615, end: 20050615
  2. CAPECITABINE [Suspect]
     Indication: BREAST CANCER
     Dosage: DOSE: 1500 + 1000
     Route: 048
     Dates: start: 20050615, end: 20050615
  3. ZOLOFT [Suspect]
     Indication: BREAST CANCER
     Dosage: DOSE: 50 MG (1.5 + 1) 75 + 50
     Route: 048

REACTIONS (2)
  - CONVULSION [None]
  - HYPOKALAEMIA [None]
